FAERS Safety Report 9523220 (Version 1)
Quarter: 2013Q1

REPORT INFORMATION
  Report Type: Spontaneous
  Country: US (occurrence: None)
  Receive Date: 20130305
  Receipt Date: 20130305
  Transmission Date: 20140127
  Serious: Yes (Hospitalization, Other)
  Sender: FDA-Public Use
  Company Number: 163-21880-12070269

PATIENT
  Age: 70 Year
  Sex: Female

DRUGS (1)
  1. REVLIMID (LENALIDOMIDE) (CAPSULES) [Suspect]
     Indication: PLASMA CELL MYELOMA
     Dosage: 6/20/2012 - TEMPORARILY INTERRUPTED?25 MG, DAILY FOR 21D ON FOLLOWED BY 7D OFF, PO
     Route: 048
     Dates: start: 20120602

REACTIONS (2)
  - Thrombophlebitis superficial [None]
  - Fatigue [None]
